FAERS Safety Report 9904808 (Version 4)
Quarter: 2014Q2

REPORT INFORMATION
  Report Type: Spontaneous
  Country: US (occurrence: US)
  Receive Date: 20140218
  Receipt Date: 20140509
  Transmission Date: 20141212
  Serious: Yes (Other)
  Sender: FDA-Public Use
  Company Number: US-LUNDBECK-DKLU1096985

PATIENT
  Age: 25 Year
  Sex: Male

DRUGS (8)
  1. SABRIL     (TABLET) [Suspect]
     Indication: TONIC CONVULSION
     Route: 048
     Dates: start: 20111115
  2. SABRIL     (TABLET) [Suspect]
     Route: 048
     Dates: start: 20120404
  3. SABRIL     (TABLET) [Suspect]
     Route: 048
     Dates: start: 20121218
  4. SABRIL     (TABLET) [Suspect]
     Route: 048
     Dates: start: 20130123
  5. SABRIL     (TABLET) [Suspect]
     Route: 048
     Dates: start: 20140205
  6. SABRIL     (TABLET) [Suspect]
     Route: 048
     Dates: start: 20140502
  7. DEPAKOTE [Concomitant]
     Indication: PRODUCT USED FOR UNKNOWN INDICATION
  8. KEPPRA [Concomitant]
     Indication: PRODUCT USED FOR UNKNOWN INDICATION

REACTIONS (2)
  - Convulsion [Unknown]
  - Drug dose omission [Recovered/Resolved]
